FAERS Safety Report 7121743-5 (Version None)
Quarter: 2010Q4

REPORT INFORMATION
  Report Type: 
  Country: None (occurrence: None)
  Receive Date: 20101124
  Receipt Date: 20101116
  Transmission Date: 20110411
  Serious: Yes (Hospitalization, Other)
  Sender: FDA-Public Use
  Company Number: IE-ROCHE-403678

PATIENT
  Sex: Female
  Weight: 93 kg

DRUGS (6)
  1. XENICAL [Suspect]
     Indication: OBESITY
     Route: 048
     Dates: start: 20000201, end: 20021010
  2. XENICAL [Suspect]
     Route: 048
     Dates: start: 20040616, end: 20040714
  3. XENICAL [Suspect]
     Route: 048
     Dates: start: 20040915, end: 20041019
  4. CITALOPRAM HYDROBROMIDE [Concomitant]
  5. CENTYL [Concomitant]
  6. ACETAMINOPHEN W/ CODEINE [Concomitant]

REACTIONS (6)
  - CONTUSION [None]
  - HAEMATURIA [None]
  - HAEMOPTYSIS [None]
  - HAEMORRHAGE [None]
  - OVERDOSE [None]
  - VITAMIN K DEFICIENCY [None]
